FAERS Safety Report 12218568 (Version 1)
Quarter: 2016Q1

REPORT INFORMATION
  Report Type: Spontaneous
  Country: US (occurrence: US)
  Receive Date: 20160329
  Receipt Date: 20160329
  Transmission Date: 20160526
  Serious: No
  Sender: FDA-Public Use
  Company Number: US-BAUSCH-BL-2015-031059

PATIENT
  Sex: Male
  Weight: 84 kg

DRUGS (2)
  1. SIMVASTATIN. [Concomitant]
     Active Substance: SIMVASTATIN
     Indication: BLOOD CHOLESTEROL INCREASED
     Route: 048
  2. RENOVA [Suspect]
     Active Substance: TRETINOIN
     Indication: THERAPEUTIC SKIN CARE TOPICAL
     Dosage: FOUR TO FIVE DAYS
     Route: 061
     Dates: start: 20151216

REACTIONS (3)
  - Erythema [Unknown]
  - Application site inflammation [Unknown]
  - Acne [Unknown]
